FAERS Safety Report 23417855 (Version 1)
Quarter: 2024Q1

REPORT INFORMATION
  Report Type: Spontaneous
  Country: US (occurrence: US)
  Receive Date: 20240118
  Receipt Date: 20240118
  Transmission Date: 20240410
  Serious: No
  Sender: FDA-Public Use
  Company Number: US-SA-SAC20240116000108

PATIENT
  Sex: Female
  Weight: 53.9 kg

DRUGS (2)
  1. DUPIXENT [Suspect]
     Active Substance: DUPILUMAB
     Indication: Dermatitis atopic
     Dosage: 300 MG, QOW
     Route: 058
  2. BENZACLIN [Concomitant]
     Active Substance: BENZOYL PEROXIDE\CLINDAMYCIN PHOSPHATE

REACTIONS (5)
  - Acne cystic [Not Recovered/Not Resolved]
  - Sleep disorder [Recovering/Resolving]
  - Vision blurred [Unknown]
  - Oral herpes [Unknown]
  - Injection site erythema [Unknown]
